FAERS Safety Report 15782285 (Version 4)
Quarter: 2019Q3

REPORT INFORMATION
  Report Type: Report from Study
  Country: None (occurrence: JP)
  Receive Date: 20190102
  Receipt Date: 20190917
  Transmission Date: 20191004
  Serious: Yes (Hospitalization)
  Sender: FDA-Public Use
  Company Number: JP-ABBVIE-17K-087-2100393-00

PATIENT
  Age: 72 Year
  Sex: Female

DRUGS (41)
  1. LOXOPROFEN SODIUM HYDRATE [Concomitant]
     Active Substance: LOXOPROFEN SODIUM DIHYDRATE
     Indication: HEADACHE
     Dosage: PRN
     Route: 048
  2. CARBIDOPA HYDRATE - LEVODOPA MIXT [Concomitant]
     Indication: PARKINSON^S DISEASE
     Route: 048
     Dates: start: 20180807
  3. DUODOPA [Suspect]
     Active Substance: CARBIDOPA\LEVODOPA
     Dosage: MD: 3.2 ML?CD: 4.3 ML/HR ? 15 HRS?ED: 2.0 ML/UNIT ? 2
     Route: 050
     Dates: start: 20171128
  4. QUETIAPINE FUMARATE. [Concomitant]
     Active Substance: QUETIAPINE FUMARATE
     Route: 048
     Dates: start: 20170830, end: 20170903
  5. DUODOPA [Suspect]
     Active Substance: CARBIDOPA\LEVODOPA
     Dosage: MD: 5.0 ML, CD: 2.8 ML/HR X 15 HR, ED: 3.0 ML/UNIT X 2
     Route: 050
     Dates: start: 20170825, end: 20170825
  6. DUODOPA [Suspect]
     Active Substance: CARBIDOPA\LEVODOPA
     Dosage: MD: 6.0 ML, CD: 2.6 ML/HR X 15 HR, ED: 2.2 ML/UNIT X 2
     Route: 050
     Dates: start: 20170827, end: 20170828
  7. DUODOPA [Suspect]
     Active Substance: CARBIDOPA\LEVODOPA
     Dosage: MD: 3.0 ML, CD: 2.9 ML/HR X 16 HR, ED: 1.1 ML/UNIT X 3
     Route: 050
     Dates: start: 20170901, end: 20170901
  8. DUODOPA [Suspect]
     Active Substance: CARBIDOPA\LEVODOPA
     Dosage: MD: 3.2 ML, CD: 4.0 ML/HR X 15 HR, ED: 2.2 ML/UNIT X 5
     Route: 050
     Dates: start: 20171001, end: 20171006
  9. DUODOPA [Suspect]
     Active Substance: CARBIDOPA\LEVODOPA
     Dosage: MD: 3.2 ML, CD: 4.6 ML/HR X 15 HR, ED: 2.2 ML/UNIT X 5
     Route: 050
     Dates: start: 20171011, end: 20171128
  10. TIZANIDINE HYDROCHLORIDE. [Concomitant]
     Active Substance: TIZANIDINE HYDROCHLORIDE
     Indication: MUSCLE TIGHTNESS
     Route: 048
  11. DOMPERIDONE [Concomitant]
     Active Substance: DOMPERIDONE
     Indication: NAUSEA
     Dosage: PRN
     Route: 048
     Dates: start: 20171013
  12. ROTIGOTINE [Concomitant]
     Active Substance: ROTIGOTINE
     Indication: PARKINSON^S DISEASE
     Route: 061
  13. DUODOPA [Suspect]
     Active Substance: CARBIDOPA\LEVODOPA
     Dosage: MD: 6.0 ML, CD: 2.5 ML/HR X 15 HR, ED: 1.6 ML/UNIT X 4
     Route: 050
     Dates: start: 20170830, end: 20170830
  14. DUODOPA [Suspect]
     Active Substance: CARBIDOPA\LEVODOPA
     Dosage: MD: 3.2 ML, CD: 3.2 ML/HR X 15 HR, ED: 2.0 ML/UNIT X 4
     Route: 050
     Dates: start: 20170913, end: 20170919
  15. DUODOPA [Suspect]
     Active Substance: CARBIDOPA\LEVODOPA
     Dosage: MD: 3.2 ML, CD: 3.5 ML/HR X 15 HR, ED: 2.0 ML/UNIT X 4
     Route: 050
     Dates: start: 20170920, end: 20170930
  16. RINDERON VG [Suspect]
     Active Substance: BETAMETHASONE VALERATE\GENTAMICIN SULFATE
     Indication: PRODUCT USED FOR UNKNOWN INDICATION
     Route: 061
     Dates: start: 20171017, end: 20171106
  17. YOKUKANSAN [Concomitant]
     Active Substance: HERBALS
     Route: 048
     Dates: start: 20170907, end: 20170911
  18. DOPACOL [Concomitant]
     Active Substance: CARBIDOPA\LEVODOPA
     Indication: PARKINSON^S DISEASE
  19. DUODOPA [Suspect]
     Active Substance: CARBIDOPA\LEVODOPA
     Indication: PARKINSON^S DISEASE
     Dosage: MD: 3.0 ML, CD: 2.1 ML/HR X 6 HR, ED: 1.0 ML/UNIT X 1
     Route: 050
     Dates: start: 20170823, end: 20170823
  20. DUODOPA [Suspect]
     Active Substance: CARBIDOPA\LEVODOPA
     Dosage: MD: 6.0 ML, CD: 2.8 ML/HR X 15 HR, ED: 3.0 ML/UNIT X 2
     Route: 050
     Dates: start: 20170826, end: 20170826
  21. DUODOPA [Suspect]
     Active Substance: CARBIDOPA\LEVODOPA
     Dosage: MD: 3.3 ML, CD: 2.9 ML/HR X 15 HR, ED: 1.0 ML/UNIT X 1
     Route: 050
     Dates: start: 20170903, end: 20170903
  22. YOKUKANSAN [Concomitant]
     Active Substance: HERBALS
     Indication: HALLUCINATION
     Route: 048
     Dates: end: 20170906
  23. SUMATRIPTAN. [Concomitant]
     Active Substance: SUMATRIPTAN
     Indication: MIGRAINE
     Dosage: PRN
     Route: 048
     Dates: start: 20170906
  24. DUODOPA [Suspect]
     Active Substance: CARBIDOPA\LEVODOPA
     Dosage: MD: 3.3 ML, CD: 2.9 ML/HR X 15 HR, ED: 1.1 ML/UNIT X 1
     Route: 050
     Dates: start: 20170904, end: 20170904
  25. DUODOPA [Suspect]
     Active Substance: CARBIDOPA\LEVODOPA
     Dosage: MD: 3.0 ML, CD: 3.1 ML/HR X 15 HR, ED: 1.4 ML/UNIT X 2
     Route: 050
     Dates: start: 20170907, end: 20170912
  26. AMANTADINE HYDROCHLORIDE. [Concomitant]
     Active Substance: AMANTADINE HYDROCHLORIDE
     Indication: ON AND OFF PHENOMENON
     Route: 048
     Dates: end: 20170823
  27. ZONISAMIDE. [Concomitant]
     Active Substance: ZONISAMIDE
     Indication: TREMOR
     Route: 048
     Dates: end: 20170827
  28. YOKUKANSAN [Concomitant]
     Active Substance: HERBALS
     Route: 048
     Dates: start: 20170912, end: 20170914
  29. LORAZEPAM. [Concomitant]
     Active Substance: LORAZEPAM
     Indication: HALLUCINATION
     Route: 048
  30. LORAZEPAM. [Concomitant]
     Active Substance: LORAZEPAM
     Indication: ANXIETY
  31. DUODOPA [Suspect]
     Active Substance: CARBIDOPA\LEVODOPA
     Dosage: MD: 3.3 ML, CD: 2.9 ML/HR X 15 HR, ED: 1.2 ML/UNIT X1
     Route: 050
     Dates: start: 20170905, end: 20170905
  32. QUETIAPINE FUMARATE. [Concomitant]
     Active Substance: QUETIAPINE FUMARATE
     Indication: HALLUCINATION
     Route: 048
     Dates: end: 20170829
  33. MAGNESIUM OXIDE. [Concomitant]
     Active Substance: MAGNESIUM OXIDE
     Indication: CONSTIPATION
     Route: 048
  34. DUODOPA [Suspect]
     Active Substance: CARBIDOPA\LEVODOPA
     Dosage: MD: 4.0 ML, CD: 2.7 ML/HR X 15 HR, ED: 3.0 ML/UNIT X 4
     Route: 050
     Dates: start: 20170823, end: 20170824
  35. DUODOPA [Suspect]
     Active Substance: CARBIDOPA\LEVODOPA
     Dosage: MD: 6.0 ML, CD: 2.5 ML/HR X 15 HR, ED: 2.1 ML/UNIT X 1
     Route: 050
     Dates: start: 20170829, end: 20170829
  36. DUODOPA [Suspect]
     Active Substance: CARBIDOPA\LEVODOPA
     Dosage: MD: 4.0 ML, CD: 2.7 ML/HR X 15 HR, ED: 1.2 ML/UNIT X 3
     Route: 050
     Dates: start: 20170831, end: 20170831
  37. DUODOPA [Suspect]
     Active Substance: CARBIDOPA\LEVODOPA
     Dosage: MD: 3.5 ML, CD: 2.9 ML/HR X 15 HR
     Route: 050
     Dates: start: 20170902, end: 20170902
  38. DUODOPA [Suspect]
     Active Substance: CARBIDOPA\LEVODOPA
     Dosage: MD: 3.0 ML, CD: 3.0 ML/HR X 15 HR, ED: 1.3 ML/UNIT X 4
     Route: 050
     Dates: start: 20170906, end: 20170906
  39. DUODOPA [Suspect]
     Active Substance: CARBIDOPA\LEVODOPA
     Dosage: MD: 3.2 ML, CD: 4.5 ML/HR X 15 HR, ED: 2.2 ML/UNIT X 5
     Route: 050
     Dates: start: 20171007, end: 20171010
  40. LORAZEPAM. [Concomitant]
     Active Substance: LORAZEPAM
     Indication: IRRITABILITY
  41. BROTIZOLAM [Concomitant]
     Active Substance: BROTIZOLAM
     Indication: INSOMNIA
     Dosage: PRN
     Route: 048

REACTIONS (14)
  - Device occlusion [Recovered/Resolved]
  - Dyskinesia [Not Recovered/Not Resolved]
  - Therapeutic response shortened [Recovered/Resolved]
  - Device occlusion [Recovered/Resolved]
  - Therapeutic response shortened [Recovered/Resolved]
  - Therapeutic response shortened [Recovered/Resolved]
  - Therapeutic response shortened [Recovered/Resolved]
  - Medical device removal [Recovered/Resolved]
  - Medical device removal [Recovered/Resolved]
  - Device kink [Recovered/Resolved]
  - Skin candida [Recovering/Resolving]
  - Therapeutic response shortened [Recovered/Resolved]
  - Stoma site hypergranulation [Recovering/Resolving]
  - Medical device removal [Recovered/Resolved]

NARRATIVE: CASE EVENT DATE: 20170825
